FAERS Safety Report 8138398 (Version 2)
Quarter: 2013Q1

REPORT INFORMATION
  Report Type: Spontaneous
  Country: US (occurrence: US)
  Receive Date: 20110915
  Receipt Date: 20130122
  Transmission Date: 20140127
  Serious: Yes (Hospitalization, Other)
  Sender: FDA-Public Use
  Company Number: US-ASTRAZENECA-2010SE03794

PATIENT
  Age: 51 Year
  Sex: Male
  Weight: 93.9 kg

DRUGS (6)
  1. NEXIUM [Suspect]
     Indication: GASTROOESOPHAGEAL REFLUX DISEASE
     Route: 048
     Dates: start: 20080422, end: 20090923
  2. PRILOSEC DELAYED-RELEASE CAPSULES [Suspect]
     Route: 048
  3. PRILOSEC OTC [Suspect]
     Route: 048
  4. CELEBREX [Concomitant]
     Indication: ARTHRALGIA
     Route: 048
  5. FLUOXETINE [Concomitant]
     Indication: DEPRESSION
     Route: 048
  6. AMBIEN [Concomitant]
     Indication: INSOMNIA
     Route: 048

REACTIONS (13)
  - Head injury [Recovering/Resolving]
  - Fall [Recovering/Resolving]
  - Concussion [Recovering/Resolving]
  - Gastrooesophageal reflux disease [Unknown]
  - Dyspepsia [Unknown]
  - Eating disorder [Unknown]
  - Erosive oesophagitis [Unknown]
  - Oesophageal oedema [Unknown]
  - Accident at work [Unknown]
  - Burn oesophageal [Unknown]
  - Insomnia [Unknown]
  - Drug dose omission [Unknown]
  - Drug ineffective [Recovering/Resolving]
